FAERS Safety Report 20918036 (Version 1)
Quarter: 2022Q2

REPORT INFORMATION
  Report Type: Spontaneous
  Country: US (occurrence: US)
  Receive Date: 20220606
  Receipt Date: 20220606
  Transmission Date: 20220721
  Serious: No
  Sender: FDA-Public Use
  Company Number: US-BRISTOL-MYERS SQUIBB COMPANY-2022-037640

PATIENT
  Age: 70 Year
  Sex: Female

DRUGS (1)
  1. REVLIMID [Suspect]
     Active Substance: LENALIDOMIDE
     Indication: Plasma cell myeloma
     Dosage: TAKES 1 CAPSULE BY MOUTH FOR 21 DAYS AND 7DAYS OFF FOR 28 DAY CYCLE
     Route: 048

REACTIONS (2)
  - Nasopharyngitis [Unknown]
  - Circumstance or information capable of leading to medication error [Unknown]
